FAERS Safety Report 5527476-0 (Version None)
Quarter: 2007Q4

REPORT INFORMATION
  Report Type: 
  Country: None (occurrence: None)
  Receive Date: 20071128
  Receipt Date: 20071126
  Transmission Date: 20080405
  Serious: Yes (Hospitalization)
  Sender: FDA-Public Use
  Company Number: PHNU2007DE03922

PATIENT
  Age: 76 Year
  Sex: Male
  Weight: 90 kg

DRUGS (3)
  1. EXJADE [Suspect]
     Indication: HAEMOSIDEROSIS
     Dosage: 1750 MG, QD
     Route: 048
     Dates: start: 20070807, end: 20070917
  2. EXJADE [Suspect]
     Dosage: 1750 MG, QD
     Route: 048
     Dates: start: 20071017
  3. ASPIRIN [Concomitant]
     Indication: TRANSIENT ISCHAEMIC ATTACK
     Dosage: 100 MG, QD

REACTIONS (5)
  - BLOOD CREATININE INCREASED [None]
  - COLONOSCOPY [None]
  - ENDOSCOPY UPPER GASTROINTESTINAL TRACT [None]
  - FAECES DISCOLOURED [None]
  - HAEMORRHOIDS [None]
